FAERS Safety Report 10369263 (Version 2)
Quarter: 2015Q4

REPORT INFORMATION
  Report Type: Spontaneous
  Country: US (occurrence: US)
  Receive Date: 20140807
  Receipt Date: 20151002
  Transmission Date: 20160304
  Serious: Yes (Other)
  Sender: FDA-Public Use
  Company Number: US-DSJP-DSU-2014-117451

PATIENT

DRUGS (1)
  1. BENICAR HCT [Suspect]
     Active Substance: HYDROCHLOROTHIAZIDE\OLMESARTAN MEDOXOMIL
     Indication: HYPERTENSION
     Dosage: 20/12.5 MG, QD
     Route: 048
     Dates: start: 20060501, end: 20130809

REACTIONS (7)
  - Gastrointestinal haemorrhage [Unknown]
  - Diverticulitis [Unknown]
  - Hiatus hernia [Unknown]
  - Abdominal pain [Recovered/Resolved]
  - Malabsorption [Recovered/Resolved]
  - Gastric antral vascular ectasia [Recovered/Resolved]
  - Gastric ulcer [Not Recovered/Not Resolved]

NARRATIVE: CASE EVENT DATE: 2010
